FAERS Safety Report 20757519 (Version 1)
Quarter: 2022Q2

REPORT INFORMATION
  Report Type: Spontaneous
  Country: SI (occurrence: SI)
  Receive Date: 20220427
  Receipt Date: 20220427
  Transmission Date: 20220721
  Serious: Yes (Other)
  Sender: FDA-Public Use
  Company Number: SI-002147023-NVSC2022SI070917

PATIENT
  Sex: Male

DRUGS (4)
  1. SILDENAFIL [Suspect]
     Active Substance: SILDENAFIL
     Indication: Product used for unknown indication
     Dosage: UNK (OCCASIONALLY)
     Route: 065
  2. GALANTAMINE HYDROBROMIDE [Suspect]
     Active Substance: GALANTAMINE HYDROBROMIDE
     Indication: Dementia Alzheimer^s type
     Dosage: 8 MILLIGRAM, Q2W, (SUSTAINED RELEASE), START: ??-OCT-2017
     Route: 065
  3. GALANTAMINE HYDROBROMIDE [Suspect]
     Active Substance: GALANTAMINE HYDROBROMIDE
     Dosage: 24 MILLIGRAM, START: ??-DEC-2017
     Route: 065
  4. GALANTAMINE HYDROBROMIDE [Suspect]
     Active Substance: GALANTAMINE HYDROBROMIDE
     Dosage: 16 MILLIGRAM, QW
     Route: 065

REACTIONS (10)
  - Dementia Alzheimer^s type [Unknown]
  - Cerebral atrophy [Unknown]
  - CSF test abnormal [Unknown]
  - Memory impairment [Not Recovered/Not Resolved]
  - Cerebral calcification [Unknown]
  - Disorientation [Unknown]
  - Headache [Unknown]
  - Limb injury [Not Recovered/Not Resolved]
  - Decreased interest [Unknown]
  - Anxiety [Unknown]

NARRATIVE: CASE EVENT DATE: 20150101
